FAERS Safety Report 6632267-3 (Version None)
Quarter: 2010Q1

REPORT INFORMATION
  Report Type: 
  Country: None (occurrence: None)
  Receive Date: 20100310
  Receipt Date: 20100303
  Transmission Date: 20100710
  Serious: Yes (Death, Hospitalization)
  Sender: FDA-Public Use
  Company Number: 2010US000721

PATIENT
  Age: 61 Year
  Sex: Male

DRUGS (4)
  1. PROGRAF [Suspect]
     Indication: LIVER TRANSPLANT
     Dosage: 0.5 MG, UID/QD, ORAL
     Route: 048
     Dates: start: 20080526
  2. ACTIGALL [Concomitant]
  3. PRILOSEC [Suspect]
  4. NIFEDIPINE [Concomitant]

REACTIONS (4)
  - COMPLICATIONS OF TRANSPLANT SURGERY [None]
  - HEPATIC FAILURE [None]
  - LIVER TRANSPLANT REJECTION [None]
  - TREATMENT NONCOMPLIANCE [None]
